FAERS Safety Report 15616916 (Version 1)
Quarter: 2018Q4

REPORT INFORMATION
  Report Type: Spontaneous
  Country: US (occurrence: US)
  Receive Date: 20181109
  Receipt Date: 20181109
  Transmission Date: 20190205
  Serious: No
  Sender: FDA-Public Use
  Company Number: None

PATIENT
  Age: 44 Year
  Sex: Female

DRUGS (2)
  1. H.P. ACTHAR [Suspect]
     Active Substance: CORTICOTROPIN
     Indication: SYSTEMIC LUPUS ERYTHEMATOSUS
     Dosage: ?          OTHER DOSE:80 UNITS (1ML);?
     Route: 058
     Dates: start: 201803
  2. H.P. ACTHAR [Suspect]
     Active Substance: CORTICOTROPIN
     Indication: CUTANEOUS LUPUS ERYTHEMATOSUS

REACTIONS (3)
  - Pain [None]
  - Drug ineffective [None]
  - Mobility decreased [None]
